FAERS Safety Report 16945289 (Version 1)
Quarter: 2019Q4

REPORT INFORMATION
  Report Type: Spontaneous
  Country: US (occurrence: US)
  Receive Date: 20191021
  Receipt Date: 20191021
  Transmission Date: 20200122
  Serious: Yes (Other)
  Sender: FDA-Public Use
  Company Number: None

PATIENT
  Age: 31 Year
  Weight: 79.2 kg

DRUGS (1)
  1. TESTOSTERONE CYPIONA 200MG/ML [Suspect]
     Active Substance: TESTOSTERONE CYPIONATE
     Indication: TRANS-SEXUALISM
     Dosage: ?          QUANTITY:0.3 INJECTION(S);OTHER FREQUENCY:EVERY WEEK;OTHER ROUTE:INJECTED INTRAMUSCULARY?

REACTIONS (3)
  - Psychotic behaviour [None]
  - Agitation [None]
  - Paranoia [None]

NARRATIVE: CASE EVENT DATE: 20190610
